FAERS Safety Report 10235433 (Version 1)
Quarter: 2014Q1

REPORT INFORMATION
  Report Type: Spontaneous
  Country: US (occurrence: None)
  Receive Date: 20140306
  Receipt Date: 20140306
  Transmission Date: 20141002
  Serious: Yes (Other)
  Sender: FDA-Public Use
  Company Number: 163-21880-13011189

PATIENT
  Age: 80 Year
  Sex: Male

DRUGS (2)
  1. REVLIMID (LENALIDOMIDE) (15 MILLIGRAM, CAPSULES) [Suspect]
     Indication: PLASMA CELL MYELOMA
     Dosage: 21 IN 21 D
     Route: 048
     Dates: start: 20120515
  2. VICODIN (VICODIN) [Concomitant]

REACTIONS (4)
  - Agitation [None]
  - Treatment noncompliance [None]
  - Pain [None]
  - Full blood count increased [None]
